FAERS Safety Report 5410524-6 (Version None)
Quarter: 2007Q3

REPORT INFORMATION
  Report Type: 
  Country: None (occurrence: None)
  Receive Date: 20070810
  Receipt Date: 20070214
  Transmission Date: 20080115
  Serious: No
  Sender: FDA-Public Use
  Company Number: A0639588A

PATIENT
  Age: 50 Year
  Sex: Female

DRUGS (2)
  1. PAXIL [Suspect]
     Indication: DEPRESSION
     Dates: start: 20000401, end: 20000101
  2. PRILOSEC [Concomitant]

REACTIONS (5)
  - DRUG INEFFECTIVE [None]
  - DYSPEPSIA [None]
  - HEADACHE [None]
  - MIGRAINE [None]
  - VOMITING [None]
